FAERS Safety Report 5852686-2 (Version None)
Quarter: 2008Q3

REPORT INFORMATION
  Report Type: 
  Country: None (occurrence: None)
  Receive Date: 20080821
  Receipt Date: 20080812
  Transmission Date: 20090109
  Serious: Yes (Death, Hospitalization)
  Sender: FDA-Public Use
  Company Number: US-JNJFOC-20080803059

PATIENT
  Sex: Male
  Weight: 61.24 kg

DRUGS (8)
  1. REMICADE [Suspect]
     Route: 042
  2. REMICADE [Suspect]
     Route: 042
  3. REMICADE [Suspect]
     Route: 042
  4. REMICADE [Suspect]
     Route: 042
  5. REMICADE [Suspect]
     Route: 042
  6. REMICADE [Suspect]
     Route: 042
  7. REMICADE [Suspect]
     Indication: CROHN'S DISEASE
     Dosage: 2 INFUSIONS PRIOR TO BASELINE
     Route: 042
  8. TRANSPLANT MEDICATION [Concomitant]

REACTIONS (3)
  - ACUTE HEPATIC FAILURE [None]
  - HEPATIC ARTERY THROMBOSIS [None]
  - TRANSPLANT FAILURE [None]
